FAERS Safety Report 10007212 (Version 1)
Quarter: 2014Q1

REPORT INFORMATION
  Report Type: Spontaneous
  Country: US (occurrence: None)
  Receive Date: 20140311
  Receipt Date: 20140311
  Transmission Date: 20141002
  Serious: Yes (Life-Threatening)
  Sender: FDA-Public Use
  Company Number: FK201400735

PATIENT
  Age: 3 Year
  Sex: Female

DRUGS (1)
  1. PROPOFOL [Suspect]
     Indication: INDUCTION AND MAINTENANCE OF ANAESTHESIA
     Dosage: (NOT OTHERWISE SPECIFIED)
     Route: 042

REACTIONS (9)
  - Metabolic acidosis [None]
  - Renal failure acute [None]
  - Rhabdomyolysis [None]
  - Encephalopathy [None]
  - Propofol infusion syndrome [None]
  - Muscular weakness [None]
  - Muscular weakness [None]
  - Neurological symptom [None]
  - Nuclear magnetic resonance imaging abnormal [None]
